FAERS Safety Report 6783553-8 (Version None)
Quarter: 2010Q2

REPORT INFORMATION
  Report Type: 
  Country: None (occurrence: None)
  Receive Date: 20100622
  Receipt Date: 20100618
  Transmission Date: 20101027
  Serious: Yes (Other)
  Sender: FDA-Public Use
  Company Number: US-B.I. PHARMACEUTICALS,INC./RIDGEFIELD-2010-DE-03356GD

PATIENT

DRUGS (4)
  1. DIPYRIDAMOLE [Suspect]
     Indication: ANTIPLATELET THERAPY
  2. ASPIRIN [Suspect]
     Indication: ANTIPLATELET THERAPY
  3. HEPARIN [Suspect]
     Indication: ANTICOAGULANT THERAPY
  4. COUMADIN [Suspect]
     Indication: ANTICOAGULANT THERAPY

REACTIONS (1)
  - GASTROINTESTINAL HAEMORRHAGE [None]
